FAERS Safety Report 13211567 (Version 1)
Quarter: 2017Q1

REPORT INFORMATION
  Report Type: Spontaneous
  Country: US (occurrence: US)
  Receive Date: 20170209
  Receipt Date: 20170209
  Transmission Date: 20170428
  Serious: No
  Sender: FDA-Public Use
  Company Number: US-ALLERGAN-1656262US

PATIENT
  Age: 54 Year
  Sex: Female
  Weight: 70.3 kg

DRUGS (1)
  1. BOTOX COSMETIC [Suspect]
     Active Substance: ONABOTULINUMTOXINA
     Indication: SKIN WRINKLING
     Dosage: 24 UNITS, SINGLE
     Route: 030
     Dates: start: 20160427, end: 20160427

REACTIONS (8)
  - Skin tightness [Recovered/Resolved]
  - Fatigue [Recovered/Resolved]
  - Dysgeusia [Recovered/Resolved]
  - Headache [Recovered/Resolved]
  - Incontinence [Recovered/Resolved]
  - Nausea [Recovered/Resolved]
  - Dizziness [Recovered/Resolved]
  - Dyspnoea [Recovered/Resolved]

NARRATIVE: CASE EVENT DATE: 20160427
